FAERS Safety Report 6065644-2 (Version None)
Quarter: 2009Q1

REPORT INFORMATION
  Report Type: 
  Country: None (occurrence: None)
  Receive Date: 20090130
  Receipt Date: 20090114
  Transmission Date: 20090719
  Serious: Yes (Hospitalization)
  Sender: FDA-Public Use
  Company Number: TCI2008A05094

PATIENT
  Age: 75 Year
  Sex: Female

DRUGS (6)
  1. LANSOPRAZOLE [Suspect]
     Indication: PROPHYLAXIS AGAINST GASTROINTESTINAL ULCER
     Dosage: 15 MG (15 MG,1 IN 1 D) PER ORAL
     Route: 048
     Dates: start: 20080318, end: 20081006
  2. BUFFERIN (BUFFERIN /01519201/) (TABLETS) [Concomitant]
  3. LOCHOL (FLUVASTATIN SODIUM) (TABLETS) [Concomitant]
  4. ARTIST (CARVEDILOL) (TABLETS) [Concomitant]
  5. AMLODIPINE (AMLODIPINE BESILATE) (TABLETS) [Concomitant]
  6. LIVOSTIN (LEVOCABASTINE HYDROCHLORIDE) (EYE DROPS) [Concomitant]

REACTIONS (1)
  - GASTRITIS [None]
